FAERS Safety Report 19668831 (Version 3)
Quarter: 2021Q3

REPORT INFORMATION
  Report Type: Spontaneous
  Country: US (occurrence: US)
  Receive Date: 20210806
  Receipt Date: 20210916
  Transmission Date: 20211014
  Serious: Yes (Other)
  Sender: FDA-Public Use
  Company Number: US-GW PHARMA-202108USGW03803

PATIENT

DRUGS (1)
  1. EPIDIOLEX [Suspect]
     Active Substance: CANNABIDIOL
     Indication: EPILEPSY
     Dosage: 560 MILLIGRAM, BID
     Route: 048
     Dates: start: 202008

REACTIONS (5)
  - Insurance issue [Unknown]
  - Seizure [Unknown]
  - Migraine [Unknown]
  - Product dose omission issue [Unknown]
  - Product prescribing issue [Unknown]
